FAERS Safety Report 10220901 (Version 5)
Quarter: 2014Q4

REPORT INFORMATION
  Report Type: Spontaneous
  Country: US (occurrence: None)
  Receive Date: 20140604
  Receipt Date: 20141210
  Transmission Date: 20150528
  Serious: Yes (Hospitalization, Other)
  Sender: FDA-Public Use
  Company Number: ADR-2014-00893

PATIENT
  Age: 52 Year
  Sex: Female

DRUGS (4)
  1. BUPIVACAINE [Suspect]
     Active Substance: BUPIVACAINE
  2. MORPHINE [Suspect]
     Active Substance: MORPHINE
     Dosage: SEE B5
  3. CLONIDINE. [Suspect]
     Active Substance: CLONIDINE
  4. BACLOFEN. [Suspect]
     Active Substance: BACLOFEN
     Indication: PAIN
     Dosage: SEE B5?

REACTIONS (11)
  - Device power source issue [None]
  - Device difficult to use [None]
  - Agitation [None]
  - Activities of daily living impaired [None]
  - Feeling abnormal [None]
  - General physical health deterioration [None]
  - Drug withdrawal syndrome [None]
  - Disturbance in attention [None]
  - Disorientation [None]
  - Pain [None]
  - Restlessness [None]

NARRATIVE: CASE EVENT DATE: 20140515
